FAERS Safety Report 10288908 (Version 1)
Quarter: 2014Q3

REPORT INFORMATION
  Report Type: Spontaneous
  Country: CA (occurrence: CA)
  Receive Date: 20140709
  Receipt Date: 20140709
  Transmission Date: 20150326
  Serious: Yes (Other)
  Sender: FDA-Public Use
  Company Number: PHHY2014CA083513

PATIENT
  Age: 45 Year
  Sex: Female

DRUGS (13)
  1. VALPROIC ACID. [Suspect]
     Active Substance: VALPROIC ACID
     Indication: MAJOR DEPRESSION
  2. FLUPHENAZINE [Concomitant]
     Active Substance: FLUPHENAZINE
  3. TRIFLUOPERAZINE [Concomitant]
     Active Substance: TRIFLUOPERAZINE\TRIFLUOPERAZINE HYDROCHLORIDE
  4. CLOZAPINE. [Suspect]
     Active Substance: CLOZAPINE
     Dosage: 500 MG, PER DAY
  5. RISPERIDONE. [Suspect]
     Active Substance: RISPERIDONE
     Indication: MAJOR DEPRESSION
  6. FLUSPIRILENE [Concomitant]
     Active Substance: FLUSPIRILENE
  7. IMIPRAMINE [Concomitant]
     Active Substance: IMIPRAMINE
  8. OLANZAPINE. [Suspect]
     Active Substance: OLANZAPINE
     Dosage: 30 MG, PERDAY
  9. THIORIDAZINE [Concomitant]
     Active Substance: THIORIDAZINE
  10. CLOZAPINE. [Suspect]
     Active Substance: CLOZAPINE
     Indication: SCHIZOPHRENIA, PARANOID TYPE
     Dosage: 600 MG, PERDAY
  11. CLOPENTHIXOL [Suspect]
     Active Substance: CLOPENTHIXOL
  12. HALOPERIDOL. [Concomitant]
     Active Substance: HALOPERIDOL
  13. CHLORPROMAZINE [Concomitant]
     Active Substance: CHLORPROMAZINE

REACTIONS (6)
  - Dyskinesia [Unknown]
  - Affect lability [Unknown]
  - Akathisia [Unknown]
  - Drug ineffective [Unknown]
  - Musculoskeletal stiffness [Unknown]
  - Pleurothotonus [Unknown]
